FAERS Safety Report 12478775 (Version 1)
Quarter: 2016Q2

REPORT INFORMATION
  Report Type: Spontaneous
  Country: US (occurrence: US)
  Receive Date: 20160619
  Receipt Date: 20160619
  Transmission Date: 20160815
  Serious: No
  Sender: FDA-Public Use
  Company Number: US-AMGEN-USASP2016073775

PATIENT
  Age: 16 Year
  Sex: Male

DRUGS (1)
  1. ENBREL [Suspect]
     Active Substance: ETANERCEPT
     Indication: JUVENILE IDIOPATHIC ARTHRITIS
     Dosage: 50 MG, QWK ON TUESDAY
     Route: 065

REACTIONS (3)
  - Incorrect product storage [Unknown]
  - Drug dose omission [Unknown]
  - Off label use [Unknown]

NARRATIVE: CASE EVENT DATE: 20160607
